FAERS Safety Report 7402923-8 (Version None)
Quarter: 2011Q1

REPORT INFORMATION
  Report Type: 
  Country: None (occurrence: None)
  Receive Date: 20110330
  Receipt Date: 20110315
  Transmission Date: 20110831
  Serious: Yes (Hospitalization)
  Sender: FDA-Public Use
  Company Number: DAV-AE-AMO-11-016

PATIENT
  Age: 38 Year
  Sex: Male

DRUGS (1)
  1. AMOXICILLIN [Suspect]
     Indication: NASOPHARYNGITIS

REACTIONS (11)
  - RECTAL TENESMUS [None]
  - RECTAL HAEMORRHAGE [None]
  - ANAL SPHINCTER ATONY [None]
  - BONE MARROW FAILURE [None]
  - ABDOMINAL PAIN [None]
  - ABDOMINAL DISTENSION [None]
  - PYREXIA [None]
  - MUSCLE SPASMS [None]
  - DIARRHOEA [None]
  - PROCTITIS [None]
  - PANCYTOPENIA [None]
